FAERS Safety Report 24761587 (Version 1)
Quarter: 2024Q4

REPORT INFORMATION
  Report Type: Spontaneous
  Country: CH (occurrence: CH)
  Receive Date: 20241220
  Receipt Date: 20241220
  Transmission Date: 20250114
  Serious: Yes (Hospitalization, Other)
  Sender: PFIZER
  Company Number: None

PATIENT
  Age: 75 Year
  Sex: Female
  Weight: 69 kg

DRUGS (5)
  1. DILTIAZEM HYDROCHLORIDE [Interacting]
     Active Substance: DILTIAZEM HYDROCHLORIDE
     Indication: Atrial fibrillation
     Dosage: 90 MG, 2X/DAY (LONG TERM TREATMENT)
     Route: 048
     Dates: start: 2022
  2. XARELTO [Interacting]
     Active Substance: RIVAROXABAN
     Indication: Atrial fibrillation
     Dosage: 20 MG, 1X/DAY (LONG TERM TREATMENT)
     Route: 048
     Dates: start: 2022, end: 20241105
  3. CO IRBESARTAN [IRBESARTAN] [Concomitant]
     Dosage: 1 DF, 1X/DAY (LONG TERM TREATMENT)
     Route: 048
  4. ATORVASTATIN CALCIUM [Concomitant]
     Active Substance: ATORVASTATIN CALCIUM
     Dosage: 40 MG, 1X/DAY (LONG TERM TREATMENT)
     Route: 048
  5. PREDNISOLONE [Concomitant]
     Active Substance: PREDNISOLONE
     Indication: Rheumatoid arthritis
     Dosage: 5 MG, 1X/DAY (LONG TERM TREATMENT)
     Route: 048

REACTIONS (10)
  - Muscle haemorrhage [Recovered/Resolved]
  - Spontaneous haemorrhage [Recovered/Resolved]
  - Shock haemorrhagic [Recovered/Resolved]
  - Haematoma muscle [Recovered/Resolved]
  - Haematoma [Recovered/Resolved]
  - Normochromic normocytic anaemia [Recovered/Resolved]
  - Drug interaction [Recovered/Resolved]
  - Pain in extremity [Unknown]
  - Peripheral swelling [Unknown]
  - Off label use [Unknown]

NARRATIVE: CASE EVENT DATE: 20220101
